FAERS Safety Report 4401211-1 (Version None)
Quarter: 2004Q3

REPORT INFORMATION
  Report Type: 
  Country: None (occurrence: None)
  Receive Date: 20040907
  Receipt Date: 20031222
  Transmission Date: 20050211
  Serious: Yes (Hospitalization)
  Sender: FDA-Public Use
  Company Number: US-BRISTOL-MYERS SQUIBB COMPANY-12463477

PATIENT
  Age: 77 Year
  Sex: Male
  Weight: 92 kg

DRUGS (8)
  1. COUMADIN [Suspect]
     Indication: THROMBOSIS PROPHYLAXIS
     Dosage: DOSE: 5-7MG THREE TIMES/WEEK.
     Route: 048
  2. SYNTHROID [Concomitant]
  3. COLACE [Concomitant]
  4. ONE-A-DAY [Concomitant]
  5. TRICOR [Concomitant]
     Dates: start: 20030501
  6. CARDURA [Concomitant]
  7. DARVOCET [Concomitant]
     Indication: PAIN
  8. DITROPAN [Concomitant]

REACTIONS (1)
  - INTERNATIONAL NORMALISED RATIO ABNORMAL [None]
